FAERS Safety Report 8623536-6 (Version None)
Quarter: 2012Q3

REPORT INFORMATION
  Report Type: 
  Country: None (occurrence: None)
  Receive Date: 20120827
  Receipt Date: 20120824
  Transmission Date: 20120928
  Serious: Yes (Other)
  Sender: FDA-Public Use
  Company Number: US-PFIZER INC-2012208777

PATIENT
  Age: 84 Year
  Sex: Female
  Weight: 61.224 kg

DRUGS (4)
  1. ASPIRIN [Concomitant]
     Dosage: UNK
  2. ZOLOFT [Suspect]
     Indication: DEPRESSION
     Dosage: 50 MG, 1X/DAY
     Route: 048
     Dates: start: 20040101
  3. AMLODIPINE [Concomitant]
     Indication: HYPERTENSION
     Dosage: 3.5 MG, UNK
  4. ZETIA [Concomitant]
     Dosage: 10 MG, 1X/DAY

REACTIONS (1)
  - MACULAR DEGENERATION [None]
